FAERS Safety Report 6427163-0 (Version None)
Quarter: 2009Q4

REPORT INFORMATION
  Report Type: 
  Country: None (occurrence: None)
  Receive Date: 20091026
  Receipt Date: 20090728
  Transmission Date: 20100525
  Serious: No
  Sender: FDA-Public Use
  Company Number: FPI-09-FIR-0223

PATIENT
  Age: 79 Year
  Sex: Male

DRUGS (8)
  1. FIRMAGON [Suspect]
     Indication: PROSTATE CANCER
     Dosage: 240MG, ONCE
     Dates: start: 20090515
  2. FIRMAGON [Suspect]
     Indication: PROSTATE CANCER
     Dosage: 80MG, ONCE
     Dates: end: 20090715
  3. METFORMIN HCL [Concomitant]
  4. LISINOPRIL [Concomitant]
  5. HYDROCHLOROTHIAZIDE [Concomitant]
  6. NIASPAN [Concomitant]
  7. SYNTHROID [Concomitant]
  8. LIPITOR [Concomitant]

REACTIONS (5)
  - BLOOD GLUCOSE INCREASED [None]
  - FLUSHING [None]
  - HOT FLUSH [None]
  - HYPERHIDROSIS [None]
  - PRURITUS [None]
